FAERS Safety Report 14374431 (Version 1)
Quarter: 2018Q1

REPORT INFORMATION
  Report Type: Spontaneous
  Country: SE (occurrence: SE)
  Receive Date: 20180111
  Receipt Date: 20180111
  Transmission Date: 20180509
  Serious: Yes (Disabling)
  Sender: FDA-Public Use
  Company Number: SE-009507513-1801SWE003554

PATIENT
  Age: 30 Year
  Sex: Female

DRUGS (1)
  1. MIRTAZAPINE. [Suspect]
     Active Substance: MIRTAZAPINE
     Dosage: UNK, FORMULATION : ORO-DISPERSIBLE TABLET
     Route: 048

REACTIONS (1)
  - Oral discomfort [Not Recovered/Not Resolved]
